FAERS Safety Report 15111661 (Version 1)
Quarter: 2018Q3

REPORT INFORMATION
  Report Type: Report from Study
  Country: DE (occurrence: DE)
  Receive Date: 20180705
  Receipt Date: 20180705
  Transmission Date: 20181010
  Serious: Yes (Congenital Anomaly, Other)
  Sender: FDA-Public Use
  Company Number: DE-TEVA-2018-DE-919883

PATIENT
  Sex: Male

DRUGS (2)
  1. RAMIPRIL. [Suspect]
     Active Substance: RAMIPRIL
     Indication: HYPERTENSION
     Dosage: EXPOSURE DURATION: 0?7+4 WEEKS
     Route: 064
  2. L?THYROXINE [Concomitant]
     Active Substance: LEVOTHYROXINE
     Dosage: EXPOSURE DURATION: 0?40 WEEKS
     Route: 064

REACTIONS (9)
  - Foetal exposure during pregnancy [Unknown]
  - Atrial septal defect [Unknown]
  - Thrombocytopenia neonatal [Unknown]
  - Neonatal asphyxia [Unknown]
  - Talipes [Unknown]
  - Ventricular septal defect [Unknown]
  - Tricuspid valve incompetence [Unknown]
  - Patent ductus arteriosus [Unknown]
  - Neonatal respiratory distress [Unknown]
